FAERS Safety Report 17308795 (Version 1)
Quarter: 2020Q1

REPORT INFORMATION
  Report Type: Spontaneous
  Country: JP (occurrence: JP)
  Receive Date: 20200123
  Receipt Date: 20200123
  Transmission Date: 20200409
  Serious: Yes (Life-Threatening)
  Sender: FDA-Public Use
  Company Number: JP-009507513-2001JPN007745

PATIENT
  Age: 62 Year
  Sex: Male
  Weight: 56 kg

DRUGS (9)
  1. AMARYL [Suspect]
     Active Substance: GLIMEPIRIDE
     Dosage: 0.5 MG, UNK
     Route: 048
  2. TEGRETOL [Suspect]
     Active Substance: CARBAMAZEPINE
     Indication: CANCER PAIN
     Dosage: 200 MG, DAILY
     Route: 048
     Dates: start: 20111208, end: 20111223
  3. OXYCONTIN [Suspect]
     Active Substance: OXYCODONE HYDROCHLORIDE
     Dosage: 80 MG, IN TWO DOSES PER DAY
     Route: 048
     Dates: start: 20110603
  4. CASODEX [Suspect]
     Active Substance: BICALUTAMIDE
     Dosage: 80 MG, IN ONE DOSE PER DAY
     Route: 048
     Dates: start: 20110602
  5. LOXONIN [Suspect]
     Active Substance: LOXOPROFEN SODIUM
     Dosage: 60 MG, QD
     Route: 048
     Dates: start: 20110609
  6. ULGUT (BENEXATE HYDROCHLORIDE) [Suspect]
     Active Substance: BENEXATE HYDROCHLORIDE
     Dosage: 600 MG, IN THREE DOSES PER DAY
     Route: 048
     Dates: start: 20110609
  7. OXINORM (ORGOTEIN) [Suspect]
     Active Substance: ORGOTEIN
     Dosage: 10 MG, QD
     Route: 048
     Dates: start: 20110602
  8. JANUVIA [Suspect]
     Active Substance: SITAGLIPTIN PHOSPHATE
     Dosage: 50 MG, UNK
     Route: 048
  9. EURODIN (ESTAZOLAM) [Suspect]
     Active Substance: ESTAZOLAM
     Dosage: 2 MG, TID
     Route: 048
     Dates: start: 20111013

REACTIONS (2)
  - Skin erosion [Unknown]
  - Toxic epidermal necrolysis [Recovering/Resolving]

NARRATIVE: CASE EVENT DATE: 20111222
